FAERS Safety Report 6219163-0 (Version None)
Quarter: 2009Q2

REPORT INFORMATION
  Report Type: 
  Country: None (occurrence: None)
  Receive Date: 20090605
  Receipt Date: 20090605
  Transmission Date: 20091009
  Serious: Yes (Other)
  Sender: FDA-Public Use
  Company Number: None

PATIENT
  Age: 38 Year
  Sex: Female
  Weight: 69.8539 kg

DRUGS (2)
  1. METOCLOPRAMIDE 10MG TABLET [Suspect]
     Indication: GASTRIC HYPOMOTILITY
     Dosage: 10 MG 4-5 TIMES DAILY PO
     Route: 048
     Dates: start: 20090411, end: 20090603
  2. METOCLOPRAMIDE 10MG TABLET [Suspect]
     Indication: NAUSEA
     Dosage: 10 MG 4-5 TIMES DAILY PO
     Route: 048
     Dates: start: 20090411, end: 20090603

REACTIONS (7)
  - ANAEMIA [None]
  - ANHEDONIA [None]
  - CRYING [None]
  - DECREASED INTEREST [None]
  - DEPRESSED MOOD [None]
  - FEELING ABNORMAL [None]
  - HYPERSOMNIA [None]
